FAERS Safety Report 5361845-7 (Version None)
Quarter: 2007Q2

REPORT INFORMATION
  Report Type: 
  Country: None (occurrence: None)
  Receive Date: 20070530
  Receipt Date: 20070319
  Transmission Date: 20071010
  Serious: No
  Sender: FDA-Public Use
  Company Number: 2006PV027114

PATIENT
  Age: 62 Year
  Sex: Female
  Weight: 111.1313 kg

DRUGS (7)
  1. BYETTA [Suspect]
     Indication: HYPERSENSITIVITY
     Dosage: SEE IMAGE
     Route: 058
     Dates: start: 20061015, end: 20061114
  2. BYETTA [Suspect]
     Indication: HYPERSENSITIVITY
     Dosage: SEE IMAGE
     Route: 058
     Dates: start: 20061115
  3. BYETTA [Suspect]
  4. COMTREX [Suspect]
     Indication: HYPERSENSITIVITY
     Dosage: QD; PO
     Route: 048
     Dates: start: 20070301, end: 20070301
  5. METFORMIN HCL [Concomitant]
  6. GLYBURIDE [Concomitant]
  7. AVANDIA [Concomitant]

REACTIONS (7)
  - ANOREXIA [None]
  - BLOOD GLUCOSE ABNORMAL [None]
  - BLOOD GLUCOSE INCREASED [None]
  - EARLY SATIETY [None]
  - NAUSEA [None]
  - SEASONAL ALLERGY [None]
  - WEIGHT DECREASED [None]
